FAERS Safety Report 10143793 (Version 1)
Quarter: 2014Q2

REPORT INFORMATION
  Report Type: Spontaneous
  Country: US (occurrence: US)
  Receive Date: 20140430
  Receipt Date: 20140430
  Transmission Date: 20141212
  Serious: Yes (Disabling)
  Sender: FDA-Public Use
  Company Number: US-VIIV HEALTHCARE LIMITED-A1070817A

PATIENT
  Age: 48 Year
  Sex: Female

DRUGS (5)
  1. TIVICAY [Suspect]
     Indication: HIV INFECTION
     Dosage: 50MG PER DAY
     Route: 048
     Dates: start: 20140218, end: 20140414
  2. TRUVADA [Concomitant]
  3. BACTRIM DS [Concomitant]
  4. FLONASE [Concomitant]
  5. TOPROL [Concomitant]

REACTIONS (2)
  - Myalgia [Unknown]
  - Blood creatine phosphokinase increased [Unknown]
